FAERS Safety Report 16073518 (Version 1)
Quarter: 2019Q1

REPORT INFORMATION
  Report Type: Spontaneous
  Country: JP (occurrence: JP)
  Receive Date: 20190314
  Receipt Date: 20190314
  Transmission Date: 20190418
  Serious: Yes (Other)
  Sender: FDA-Public Use
  Company Number: JP-ASTRAZENECA-2019SE39256

PATIENT
  Sex: Female

DRUGS (3)
  1. TRADITIONAL CHINESE MEDICINE NOS [Concomitant]
     Active Substance: HERBALS
     Indication: ABDOMINAL DISCOMFORT
     Dosage: DOSE UNKNOWN
     Route: 065
  2. NEXIUM [Suspect]
     Active Substance: ESOMEPRAZOLE MAGNESIUM
     Indication: ABDOMINAL DISCOMFORT
     Dosage: DOSE UNKNOWN
     Route: 048
  3. NEXIUM [Suspect]
     Active Substance: ESOMEPRAZOLE MAGNESIUM
     Indication: ABDOMINAL DISCOMFORT
     Dosage: DOSE UNKNOWN
     Route: 048

REACTIONS (1)
  - Breast cancer female [Not Recovered/Not Resolved]
